FAERS Safety Report 6279299-5 (Version None)
Quarter: 2009Q3

REPORT INFORMATION
  Report Type: 
  Country: None (occurrence: None)
  Receive Date: 20090723
  Receipt Date: 20081229
  Transmission Date: 20100115
  Serious: No
  Sender: FDA-Public Use
  Company Number: US-AMGEN-KDL326289

PATIENT
  Sex: Female
  Weight: 61.7 kg

DRUGS (14)
  1. PROCRIT [Suspect]
     Indication: ANAEMIA
     Dates: start: 20081219
  2. ZOLEDRONIC ACID [Concomitant]
  3. LISINOPRIL [Concomitant]
  4. HYDROCHLOROTHIAZIDE [Concomitant]
  5. LEVOTHYROXINE SODIUM [Concomitant]
  6. TRAZODONE [Concomitant]
  7. CALCIUM [Concomitant]
  8. VITAMIN D [Concomitant]
  9. FOLIC ACID [Concomitant]
  10. VITAMIN B-12 [Concomitant]
  11. ZETIA [Concomitant]
  12. CADUET [Concomitant]
  13. FISH OIL [Concomitant]
  14. MULTI-VITAMINS [Concomitant]

REACTIONS (2)
  - ASTHENIA [None]
  - INSOMNIA [None]
